FAERS Safety Report 5744810-7 (Version None)
Quarter: 2008Q2

REPORT INFORMATION
  Report Type: 
  Country: None (occurrence: None)
  Receive Date: 20080520
  Receipt Date: 20080508
  Transmission Date: 20081010
  Serious: Yes (Other)
  Sender: FDA-Public Use
  Company Number: JP-PFIZER INC-2008040454

PATIENT
  Age: 40 Year
  Sex: Female

DRUGS (5)
  1. EPLERENONE [Suspect]
     Dosage: DAILY DOSE:50MG
     Route: 048
     Dates: start: 20080320, end: 20080101
  2. ARTIST [Suspect]
     Dosage: DAILY DOSE:5MG
     Route: 048
  3. LASIX [Concomitant]
     Route: 048
     Dates: start: 20080326, end: 20080101
  4. NU LOTAN [Concomitant]
     Route: 048
  5. LOCHOL [Concomitant]
     Route: 048
     Dates: start: 20080326, end: 20080101

REACTIONS (1)
  - HEPATIC FUNCTION ABNORMAL [None]
